FAERS Safety Report 21225745 (Version 5)
Quarter: 2022Q4

REPORT INFORMATION
  Report Type: Spontaneous
  Country: US (occurrence: US)
  Receive Date: 20220818
  Receipt Date: 20221206
  Transmission Date: 20230112
  Serious: No
  Sender: FDA-Public Use
  Company Number: US-CELGENE-USA-20220105630

PATIENT
  Age: 84 Year
  Sex: Male

DRUGS (7)
  1. POMALYST [Suspect]
     Active Substance: POMALIDOMIDE
     Indication: Anxiety disorder
     Dosage: TAKE 1 CAPSULE BY MOUTH EVERY DAY FOR 21 DAYS, THEN 7 DAYS OFF.  BEGIN 15-09-2022
     Route: 048
     Dates: start: 20220715
  2. REVLIMID [Suspect]
     Active Substance: LENALIDOMIDE
     Indication: Plasma cell myeloma
     Dosage: 25 MILLIGRAM
     Route: 048
     Dates: start: 201407
  3. REVLIMID [Suspect]
     Active Substance: LENALIDOMIDE
     Indication: Anxiety disorder
     Dosage: 15 MILLIGRAM
     Route: 048
     Dates: start: 201502
  4. REVLIMID [Suspect]
     Active Substance: LENALIDOMIDE
     Dosage: 10 MILLIGRAM
     Route: 048
     Dates: start: 201709
  5. REVLIMID [Suspect]
     Active Substance: LENALIDOMIDE
     Dosage: 5 MILLIGRAM
     Route: 048
     Dates: start: 201812
  6. REVLIMID [Suspect]
     Active Substance: LENALIDOMIDE
     Dosage: 10 MILLIGRAM
     Route: 048
     Dates: start: 202112
  7. REVLIMID [Suspect]
     Active Substance: LENALIDOMIDE
     Dosage: TAKE 1 CAPSULE BY MOUTH WHOLE WITH WATER EVERY DAY FOR 21 DAYS, THEN OFF FOR 7 DAYS. DO NOT BREAK, C
     Route: 048

REACTIONS (8)
  - Fatigue [Unknown]
  - Oedema [Unknown]
  - Intentional product use issue [Unknown]
  - Adverse event [Unknown]
  - Arthralgia [Unknown]
  - Pain in extremity [Unknown]
  - Diarrhoea [Unknown]
  - Nasopharyngitis [Recovered/Resolved]
